FAERS Safety Report 5451315-X (Version None)
Quarter: 2007Q3

REPORT INFORMATION
  Report Type: 
  Country: None (occurrence: None)
  Receive Date: 20070913
  Receipt Date: 20070820
  Transmission Date: 20080115
  Serious: No
  Sender: FDA-Public Use
  Company Number: US-JNJFOC-20070804488

PATIENT
  Age: 11 Year
  Sex: Female
  Weight: 76.2 kg

DRUGS (4)
  1. INVEGA [Suspect]
     Indication: BIPOLAR DISORDER
     Route: 048
  2. ADDERALL [Concomitant]
     Indication: ATTENTION DEFICIT/HYPERACTIVITY DISORDER
  3. ALBUTEROL [Concomitant]
     Indication: ASTHMA
  4. NEBULIZER [Concomitant]
     Indication: ASTHMA

REACTIONS (1)
  - WEIGHT INCREASED [None]
